FAERS Safety Report 6113205-9 (Version None)
Quarter: 2009Q1

REPORT INFORMATION
  Report Type: 
  Country: None (occurrence: None)
  Receive Date: 20090312
  Receipt Date: 20090305
  Transmission Date: 20090719
  Serious: Yes (Hospitalization)
  Sender: FDA-Public Use
  Company Number: AU-AVENTIS-200912202GDDC

PATIENT
  Age: 81 Year
  Sex: Male

DRUGS (6)
  1. ARAVA [Suspect]
     Dosage: DOSE: UNK
     Dates: start: 20080825
  2. PREDNISONE [Concomitant]
  3. FRUSEMIDE [Concomitant]
     Dosage: DOSE: UNK
  4. ACETAMINOPHEN [Concomitant]
     Dosage: DOSE: UNK
  5. OXYGEN THERAPY [Concomitant]
     Indication: ASBESTOSIS
  6. UNKNOWN DRUG [Concomitant]

REACTIONS (4)
  - ANOREXIA [None]
  - ASBESTOSIS [None]
  - DYSGEUSIA [None]
  - WEIGHT DECREASED [None]
